FAERS Safety Report 9663862 (Version 2)
Quarter: 2013Q4

REPORT INFORMATION
  Report Type: Spontaneous
  Country: RU (occurrence: RU)
  Receive Date: 20131101
  Receipt Date: 20131212
  Transmission Date: 20140711
  Serious: Yes (Life-Threatening, Hospitalization, Other)
  Sender: FDA-Public Use
  Company Number: RU-BAYER-2013-129484

PATIENT
  Age: 63 Year
  Sex: Female
  Weight: 82 kg

DRUGS (7)
  1. AVELOX [Suspect]
     Indication: CHRONIC OBSTRUCTIVE PULMONARY DISEASE
     Dosage: UNK
     Route: 042
     Dates: start: 20131022, end: 20131022
  2. AVELOX [Suspect]
     Indication: PNEUMONIA
     Dosage: UNK
     Route: 042
     Dates: start: 20131022, end: 20131022
  3. THROMBO [Concomitant]
     Indication: MYOCARDIAL ISCHAEMIA
     Dosage: UNK
     Route: 048
     Dates: start: 20131015
  4. THROMBO [Concomitant]
     Indication: MYOCARDIAL INFARCTION
  5. CLOPIDOGREL [Concomitant]
     Indication: MYOCARDIAL ISCHAEMIA
     Dosage: UNK
     Dates: start: 20131015
  6. CLOPIDOGREL [Concomitant]
     Indication: MYOCARDIAL INFARCTION
  7. LISINOPRIL [Concomitant]
     Indication: HYPERTONIA
     Dosage: UNK
     Route: 048
     Dates: start: 20110101

REACTIONS (15)
  - Anaphylactic shock [Recovered/Resolved]
  - Pruritus [Recovered/Resolved]
  - Dizziness [Recovered/Resolved]
  - Loss of consciousness [Recovered/Resolved]
  - Cyanosis [Recovered/Resolved]
  - Respiratory arrest [Recovered/Resolved]
  - Sputum abnormal [Recovered/Resolved]
  - Electrocardiogram ST segment elevation [None]
  - Myocardial infarction [None]
  - Rales [Recovered/Resolved]
  - Hypotension [Recovered/Resolved]
  - Heart rate increased [Recovered/Resolved]
  - Oxygen saturation decreased [Recovered/Resolved]
  - Chest discomfort [None]
  - Chest pain [None]
